FAERS Safety Report 14576454 (Version 6)
Quarter: 2018Q3

REPORT INFORMATION
  Report Type: Spontaneous
  Country: US (occurrence: US)
  Receive Date: 20180227
  Receipt Date: 20180813
  Transmission Date: 20181010
  Serious: No
  Sender: FDA-Public Use
  Company Number: US-PFIZER INC-2018080709

PATIENT
  Age: 55 Year
  Sex: Female

DRUGS (2)
  1. XELJANZ [Suspect]
     Active Substance: TOFACITINIB CITRATE
     Indication: RHEUMATOID ARTHRITIS
     Dosage: 5 MG, 2X/DAY
     Route: 048
     Dates: start: 201708
  2. XELJANZ [Suspect]
     Active Substance: TOFACITINIB CITRATE
     Dosage: 5 MG, 1X/DAY (ONE MEDICATION A DAY)
     Route: 048

REACTIONS (6)
  - Malaise [Unknown]
  - Condition aggravated [Unknown]
  - Drug dose omission [Unknown]
  - Intentional product misuse [Unknown]
  - Headache [Recovering/Resolving]
  - Constipation [Unknown]
